FAERS Safety Report 23398539 (Version 1)
Quarter: 2024Q1

REPORT INFORMATION
  Report Type: Spontaneous
  Country: US (occurrence: US)
  Receive Date: 20240112
  Receipt Date: 20240112
  Transmission Date: 20240410
  Serious: No
  Sender: FDA-Public Use
  Company Number: US-PERRIGO-23US013138

PATIENT
  Age: 65 Year
  Sex: Female
  Weight: 56.689 kg

DRUGS (4)
  1. IBUPROFEN [Suspect]
     Active Substance: IBUPROFEN
     Indication: Headache
     Dosage: 200 MG, SINGLE AT BEDTIME
     Route: 048
     Dates: start: 20231113, end: 20231113
  2. IBUPROFEN [Suspect]
     Active Substance: IBUPROFEN
     Indication: Pyrexia
  3. XANAX [Concomitant]
     Active Substance: ALPRAZOLAM
     Indication: Anxiety
     Dosage: UNKNOWN, QHS
     Route: 065
     Dates: start: 2003
  4. GABAPENTIN [Concomitant]
     Active Substance: GABAPENTIN
     Indication: Pain
     Dosage: UNK
     Route: 065
     Dates: start: 2003

REACTIONS (1)
  - Vomiting [Recovered/Resolved]

NARRATIVE: CASE EVENT DATE: 20231113
